FAERS Safety Report 23855724 (Version 1)
Quarter: 2024Q2

REPORT INFORMATION
  Report Type: Spontaneous
  Country: ES (occurrence: GB)
  Receive Date: 20240514
  Receipt Date: 20240514
  Transmission Date: 20240716
  Serious: Yes (Life-Threatening, Hospitalization, Disabling, Other)
  Sender: FDA-Public Use
  Company Number: GB-Breckenridge Pharmaceutical, Inc.-2156967

PATIENT
  Age: 72 Year
  Sex: Female
  Weight: 64.3 kg

DRUGS (5)
  1. OMEPRAZOLE [Suspect]
     Active Substance: DONEPEZIL HYDROCHLORIDE\OMEPRAZOLE\OMEPRAZOLE MAGNESIUM
     Route: 048
  2. ANASTROZOLE [Interacting]
     Active Substance: ANASTROZOLE
     Route: 048
  3. ZINC [Concomitant]
     Active Substance: PYRITHIONE ZINC\ZINC\ZINC CHLORIDE
  4. RANITIDINE [Concomitant]
     Active Substance: RANITIDINE
  5. VITAMIN B12 [Concomitant]
     Active Substance: CYANOCOBALAMIN

REACTIONS (37)
  - Hiatus hernia [Unknown]
  - Blister [Unknown]
  - Bladder irritation [Unknown]
  - Endometrial cancer [Unknown]
  - Withdrawal syndrome [Unknown]
  - Neuropathy peripheral [Unknown]
  - Psychiatric symptom [Unknown]
  - Urinary incontinence [Unknown]
  - Alopecia [Unknown]
  - Emotional disorder [Unknown]
  - Abdominal mass [Unknown]
  - Skin atrophy [Unknown]
  - Macrocytosis [Unknown]
  - Hyperaesthesia [Unknown]
  - Paraesthesia [Unknown]
  - Haemorrhage [Unknown]
  - Cyanosis [Unknown]
  - Skin exfoliation [Unknown]
  - Pain in extremity [Unknown]
  - Vulvovaginal dryness [Unknown]
  - Peripheral swelling [Unknown]
  - Joint stiffness [Unknown]
  - Muscle swelling [Unknown]
  - Musculoskeletal stiffness [Unknown]
  - Fall [Unknown]
  - Urinary tract infection [Unknown]
  - Balance disorder [Unknown]
  - Burning sensation [Unknown]
  - Gait disturbance [Unknown]
  - Dysstasia [Unknown]
  - Abnormal faeces [Unknown]
  - Hot flush [Unknown]
  - Anal incontinence [Unknown]
  - Axillary mass [Unknown]
  - Dyspepsia [Unknown]
  - Asthenia [Unknown]
  - Muscle tightness [Unknown]
